FAERS Safety Report 24079557 (Version 6)
Quarter: 2025Q2

REPORT INFORMATION
  Report Type: Spontaneous
  Country: CA (occurrence: CA)
  Receive Date: 20240711
  Receipt Date: 20250606
  Transmission Date: 20250717
  Serious: Yes (Other)
  Sender: PFIZER
  Company Number: CA-PFIZER INC-202400194120

PATIENT
  Age: 8 Year
  Sex: Male

DRUGS (6)
  1. GENOTROPIN [Suspect]
     Active Substance: SOMATROPIN
     Indication: Small for dates baby
     Route: 058
     Dates: start: 20200421
  2. GENOTROPIN [Suspect]
     Active Substance: SOMATROPIN
     Route: 058
     Dates: start: 2021
  3. GENOTROPIN [Suspect]
     Active Substance: SOMATROPIN
     Route: 058
  4. GENOTROPIN [Suspect]
     Active Substance: SOMATROPIN
     Route: 058
  5. VITAMIN D NOS [Concomitant]
     Active Substance: CHOLECALCIFEROL\ERGOCALCIFEROL
     Dosage: 1000 IU, DAILY
  6. VITAMIN D NOS [Concomitant]
     Active Substance: CHOLECALCIFEROL\ERGOCALCIFEROL
     Dosage: 1200 UNK

REACTIONS (9)
  - Ichthyosis [Unknown]
  - Dry skin [Unknown]
  - Pain in extremity [Unknown]
  - Snoring [Unknown]
  - Vitamin D decreased [Unknown]
  - Alanine aminotransferase increased [Unknown]
  - Blood alkaline phosphatase increased [Unknown]
  - pH urine increased [Unknown]
  - Product dose omission issue [Unknown]

NARRATIVE: CASE EVENT DATE: 20250210
